FAERS Safety Report 4521860-X (Version None)
Quarter: 2004Q4

REPORT INFORMATION
  Report Type: 
  Country: None (occurrence: None)
  Receive Date: 20041206
  Receipt Date: 20041118
  Transmission Date: 20050328
  Serious: No
  Sender: FDA-Public Use
  Company Number: 2004-122401-NL

PATIENT
  Age: 68 Year
  Sex: Male

DRUGS (4)
  1. REMERON [Suspect]
     Indication: DEPRESSION
     Dosage: 15 MG DAILY ORAL
     Route: 048
  2. WELLBUTRIN [Concomitant]
  3. ZOLOFT [Concomitant]
  4. KLONOPIN [Concomitant]

REACTIONS (1)
  - URINARY RETENTION [None]
